FAERS Safety Report 4768901-2 (Version None)
Quarter: 2005Q3

REPORT INFORMATION
  Report Type: 
  Country: None (occurrence: None)
  Receive Date: 20050914
  Receipt Date: 20050826
  Transmission Date: 20060218
  Serious: Yes (Hospitalization, Other)
  Sender: FDA-Public Use
  Company Number: DSA_70682_2005

PATIENT
  Age: 42 Year
  Sex: Male
  Weight: 56.246 kg

DRUGS (19)
  1. AZATHIOPRINE [Suspect]
     Dosage: 25 MG QDAY
     Dates: start: 19870901, end: 20040503
  2. PROCRIT [Suspect]
     Indication: NEPHROGENIC ANAEMIA
     Dosage: DF SC
     Route: 058
     Dates: end: 20040503
  3. PROCRIT [Suspect]
     Indication: NEPHROGENIC ANAEMIA
     Dosage: 10000 IU NA SC
     Route: 058
     Dates: start: 19870101
  4. PROCRIT [Suspect]
     Indication: NEPHROGENIC ANAEMIA
     Dosage: 10000 IU QWK SC
     Route: 058
     Dates: start: 20030814
  5. PROCRIT [Suspect]
     Indication: NEPHROGENIC ANAEMIA
     Dosage: 10000 IU NA SC
     Route: 058
     Dates: start: 20030204
  6. PROCRIT [Suspect]
     Indication: NEPHROGENIC ANAEMIA
     Dosage: 40000 IU QWK SC
     Route: 058
     Dates: start: 20030902
  7. PROCRIT [Suspect]
     Indication: NEPHROGENIC ANAEMIA
     Dosage: 40000 IU NA SC
     Route: 058
     Dates: start: 20031111
  8. PROCRIT [Suspect]
     Indication: NEPHROGENIC ANAEMIA
     Dosage: DF SC
     Route: 058
     Dates: end: 20040601
  9. PROCRIT [Suspect]
     Indication: NEPHROGENIC ANAEMIA
     Dosage: 40000 IU QWK SC
     Route: 058
     Dates: start: 20040701
  10. PROCRIT [Suspect]
     Indication: NEPHROGENIC ANAEMIA
     Dosage: 100000 IU 3XWK SC
     Route: 058
     Dates: start: 20050301
  11. ALLOPURINOL [Suspect]
     Indication: GOUT
     Dates: start: 20030605, end: 20040503
  12. CYCLOSPORINE [Concomitant]
  13. PREDNISONE [Concomitant]
  14. VERAPAMIL HYDROCHLORIDE [Concomitant]
  15. FUROSEMIDE [Concomitant]
  16. ALENDRONATE SODIUM [Concomitant]
  17. EFFEXOR [Concomitant]
  18. ZOLOFT [Concomitant]
  19. KLONOPIN [Concomitant]

REACTIONS (4)
  - BONE MARROW DEPRESSION [None]
  - DYSPNOEA EXERTIONAL [None]
  - GOUT [None]
  - PARVOVIRUS B19 SEROLOGY POSITIVE [None]
